FAERS Safety Report 18080398 (Version 1)
Quarter: 2020Q3

REPORT INFORMATION
  Report Type: Spontaneous
  Country: US (occurrence: US)
  Receive Date: 20200728
  Receipt Date: 20200728
  Transmission Date: 20201103
  Serious: Yes (Other)
  Sender: FDA-Public Use
  Company Number: US-GW PHARMA-202007USGW02602

PATIENT

DRUGS (3)
  1. IRON [Suspect]
     Active Substance: IRON
     Indication: PRODUCT USED FOR UNKNOWN INDICATION
     Dosage: UNK
     Route: 065
     Dates: start: 202007
  2. EPIDIOLEX [Suspect]
     Active Substance: CANNABIDIOL
     Indication: MULTIPLE SCLEROSIS
     Dosage: 300 MILLIGRAM, BID
     Route: 048
     Dates: start: 2019
  3. CLOBAZAM. [Concomitant]
     Active Substance: CLOBAZAM
     Indication: PRODUCT USE IN UNAPPROVED INDICATION
     Dosage: UNK
     Route: 065

REACTIONS (6)
  - Product use in unapproved indication [Not Recovered/Not Resolved]
  - Seizure [Unknown]
  - Pulmonary mass [Unknown]
  - Drug ineffective [Unknown]
  - Thinking abnormal [Unknown]
  - Hepatic mass [Unknown]

NARRATIVE: CASE EVENT DATE: 2019
